FAERS Safety Report 10730169 (Version 1)
Quarter: 2015Q1

REPORT INFORMATION
  Report Type: Spontaneous
  Country: JP (occurrence: JP)
  Receive Date: 20150122
  Receipt Date: 20150122
  Transmission Date: 20150721
  Serious: Yes (Death, Hospitalization)
  Sender: FDA-Public Use
  Company Number: JP-BAYER-2015-005375

PATIENT
  Age: 69 Year
  Sex: Female

DRUGS (5)
  1. ETHYL ICOSAPENTATE [Concomitant]
     Active Substance: ETHYL ICOSAPENTATE
     Dosage: DAILY DOSE 1800 MG
     Route: 048
  2. SARPOGRELATE HYDROCHLORIDE [Concomitant]
     Active Substance: SARPOGRELATE
     Dosage: DAILY DOSE 300 MG
     Route: 048
  3. BAYASPIRIN [Suspect]
     Active Substance: ASPIRIN
     Dosage: DAILY DOSE 200 MG
     Route: 048
  4. VERAPAMIL HYDROCHLORIDE. [Concomitant]
     Active Substance: VERAPAMIL HYDROCHLORIDE
     Dosage: DAILY DOSE 120 MG
     Route: 048
  5. ATENOLOL. [Concomitant]
     Active Substance: ATENOLOL
     Dosage: DAILY DOSE 25 MG
     Route: 048

REACTIONS (6)
  - Anaemia [None]
  - Sepsis [Fatal]
  - Cardio-respiratory arrest [None]
  - Gastric ulcer haemorrhage [None]
  - Disseminated intravascular coagulation [Fatal]
  - Coronary artery stenosis [None]
